FAERS Safety Report 7385064-8 (Version None)
Quarter: 2011Q1

REPORT INFORMATION
  Report Type: 
  Country: None (occurrence: None)
  Receive Date: 20110330
  Receipt Date: 20110303
  Transmission Date: 20110831
  Serious: No
  Sender: FDA-Public Use
  Company Number: US-B.I. PHARMACEUTICALS,INC./RIDGEFIELD-2011-BP-06321BP

PATIENT
  Sex: Male

DRUGS (4)
  1. PRADAXA [Suspect]
     Indication: PROPHYLAXIS
     Dosage: 300 MG
     Route: 048
     Dates: start: 20101201
  2. DIOVAN [Concomitant]
     Indication: PROPHYLAXIS
  3. MULTIVITAMIN [Concomitant]
     Indication: PROPHYLAXIS
  4. TETRACYCLINE [Concomitant]
     Indication: ROSACEA

REACTIONS (3)
  - ABDOMINAL DISCOMFORT [None]
  - DIARRHOEA [None]
  - OEDEMA PERIPHERAL [None]
